FAERS Safety Report 10361084 (Version 1)
Quarter: 2014Q3

REPORT INFORMATION
  Report Type: Spontaneous
  Country: TR (occurrence: None)
  Receive Date: 20140731
  Receipt Date: 20140731
  Transmission Date: 20150326
  Serious: Yes (Hospitalization)
  Sender: FDA-Public Use
  Company Number: 2014HINLIT0672

PATIENT
  Age: 31 Year
  Sex: Female

DRUGS (3)
  1. ARIPIPRAZOLE [Suspect]
     Active Substance: ARIPIPRAZOLE
     Indication: PRODUCT USED FOR UNKNOWN INDICATION
  2. ESCITALOPRAM [Suspect]
     Active Substance: ESCITALOPRAM OXALATE
     Indication: PRODUCT USED FOR UNKNOWN INDICATION
  3. ACTIVE CHARCOAL (ACTIVE CHARCOAL) [Concomitant]

REACTIONS (5)
  - Faecal incontinence [None]
  - Suicide attempt [None]
  - Overdose [None]
  - Urinary incontinence [None]
  - Drug interaction [None]
